FAERS Safety Report 17958017 (Version 1)
Quarter: 2020Q2

REPORT INFORMATION
  Report Type: Spontaneous
  Country: US (occurrence: US)
  Receive Date: 20200629
  Receipt Date: 20200629
  Transmission Date: 20200714
  Serious: No
  Sender: FDA-Public Use
  Company Number: US-JNJFOC-20200635207

PATIENT
  Weight: 72.64 kg

DRUGS (3)
  1. BCG [Concomitant]
     Active Substance: BCG VACCINE
     Indication: DYSURIA
  2. DITROPAN XL [Suspect]
     Active Substance: OXYBUTYNIN CHLORIDE
     Indication: BLADDER PAIN
     Route: 065
  3. BCG [Concomitant]
     Active Substance: BCG VACCINE
     Indication: BLADDER CANCER
     Route: 065

REACTIONS (2)
  - Therapeutic response decreased [Unknown]
  - Drug level abnormal [Unknown]
